FAERS Safety Report 12741859 (Version 3)
Quarter: 2017Q1

REPORT INFORMATION
  Report Type: Other
  Country: JP (occurrence: JP)
  Receive Date: 20160914
  Receipt Date: 20170103
  Transmission Date: 20170428
  Serious: Yes (Hospitalization)
  Sender: FDA-Public Use
  Company Number: JP-HIKMA PHARMACEUTICALS CO. LTD-2016JP008517

PATIENT

DRUGS (13)
  1. INFLIXIMAB BS FOR I.V. INFUSION100 MG [NK] [Suspect]
     Active Substance: INFLIXIMAB
     Dosage: 5 MG/KG/DAY, UNK
     Route: 042
     Dates: start: 20150924, end: 20150924
  2. INFLIXIMAB BS FOR I.V. INFUSION100 MG [NK] [Suspect]
     Active Substance: INFLIXIMAB
     Dosage: 5 MG/KG/DAY, UNK
     Route: 042
     Dates: start: 20160704, end: 20160704
  3. FAMOTIDINE. [Concomitant]
     Active Substance: FAMOTIDINE
     Indication: CROHN^S DISEASE
     Dosage: 40 MG, DAILY
     Dates: start: 20150806, end: 20160117
  4. PENTASA [Concomitant]
     Active Substance: MESALAMINE
     Indication: CROHN^S DISEASE
     Dosage: 1500 MG, DAILY
     Dates: start: 20150805
  5. INFLIXIMAB BS FOR I.V. INFUSION100 MG [NK] [Suspect]
     Active Substance: INFLIXIMAB
     Dosage: 5 MG/KG/DAY, UNK
     Route: 042
     Dates: start: 20150824, end: 20150824
  6. INFLIXIMAB BS FOR I.V. INFUSION100 MG [NK] [Suspect]
     Active Substance: INFLIXIMAB
     Dosage: 5 MG/KG/DAY, UNK
     Route: 042
     Dates: start: 20151120, end: 20151120
  7. ELENTAL [Concomitant]
     Active Substance: AMINO ACIDS\CARBOHYDRATES\MINERALS\SOYBEAN OIL\VITAMINS
     Indication: CROHN^S DISEASE
     Dosage: UNK
     Dates: start: 20150807
  8. INFLIXIMAB BS FOR I.V. INFUSION100 MG [NK] [Suspect]
     Active Substance: INFLIXIMAB
     Dosage: 5 MG/KG/DAY, UNK
     Route: 042
     Dates: start: 20160314, end: 20160314
  9. INFLIXIMAB BS FOR I.V. INFUSION100 MG [NK] [Suspect]
     Active Substance: INFLIXIMAB
     Indication: CROHN^S DISEASE
     Dosage: 5 MG/KG/DAY, UNK
     Route: 042
     Dates: start: 20150810, end: 20150810
  10. INFLIXIMAB BS FOR I.V. INFUSION100 MG [NK] [Suspect]
     Active Substance: INFLIXIMAB
     Dosage: 5 MG/KG/DAY, UNK
     Route: 042
     Dates: start: 20160118, end: 20160118
  11. INFLIXIMAB BS FOR I.V. INFUSION100 MG [NK] [Suspect]
     Active Substance: INFLIXIMAB
     Dosage: 5 MG/KG/DAY, UNK
     Route: 042
     Dates: start: 20160829, end: 20160829
  12. INFLIXIMAB BS FOR I.V. INFUSION100 MG [NK] [Suspect]
     Active Substance: INFLIXIMAB
     Dosage: 5 MG/KG/DAY, UNK
     Route: 042
     Dates: start: 20160509, end: 20160509
  13. CELESTAMINE [Concomitant]
     Active Substance: BETAMETHASONE\DEXCHLORPHENIRAMINE MALEATE
     Indication: PROPHYLAXIS
     Dosage: 1 DF, DAILY

REACTIONS (1)
  - Muscle spasms [Recovered/Resolved]

NARRATIVE: CASE EVENT DATE: 20160830
